FAERS Safety Report 19309211 (Version 1)
Quarter: 2021Q2

REPORT INFORMATION
  Report Type: Spontaneous
  Country: US (occurrence: US)
  Receive Date: 20210526
  Receipt Date: 20210526
  Transmission Date: 20210717
  Serious: Yes (Other)
  Sender: FDA-Public Use
  Company Number: US-ESPERIONTHERAPEUTICS-2021USA00730

PATIENT
  Age: 72 Year
  Sex: Male
  Weight: 108.84 kg

DRUGS (4)
  1. WELCHOL [Concomitant]
     Active Substance: COLESEVELAM HYDROCHLORIDE
     Dosage: UNK
     Route: 048
  2. VASCEPA [Concomitant]
     Active Substance: ICOSAPENT ETHYL
     Dosage: UNK
     Route: 048
  3. NEXLETOL [Suspect]
     Active Substance: BEMPEDOIC ACID
     Dosage: 180 MILLIGRAM, QD
     Route: 048
     Dates: start: 202104, end: 20210424
  4. NEXLETOL [Suspect]
     Active Substance: BEMPEDOIC ACID
     Indication: BLOOD CHOLESTEROL INCREASED
     Dosage: 180 MILLIGRAM, QD
     Route: 048
     Dates: start: 20210101, end: 202104

REACTIONS (6)
  - Atrial fibrillation [Recovered/Resolved]
  - Abdominal pain [Recovered/Resolved]
  - Dizziness [Recovered/Resolved]
  - Rash [Recovered/Resolved]
  - Constipation [Recovered/Resolved]
  - Palpitations [Recovered/Resolved]

NARRATIVE: CASE EVENT DATE: 202103
